FAERS Safety Report 20099637 (Version 3)
Quarter: 2022Q3

REPORT INFORMATION
  Report Type: Other
  Country: IT (occurrence: None)
  Receive Date: 20211123
  Receipt Date: 20220914
  Transmission Date: 20221027
  Serious: Yes (Other)
  Sender: FDA-Public Use
  Company Number: IT-ROCHE-2958876

PATIENT
  Age: 56 Year
  Sex: Male
  Weight: 69.1 kg

DRUGS (7)
  1. PRALSETINIB [Suspect]
     Active Substance: PRALSETINIB
     Indication: Medullary thyroid cancer
     Dosage: 2 TABLETS (100 MG)
     Route: 048
     Dates: start: 20200505
  2. PRALSETINIB [Suspect]
     Active Substance: PRALSETINIB
     Route: 065
     Dates: start: 20200603, end: 20210403
  3. PRALSETINIB [Suspect]
     Active Substance: PRALSETINIB
     Route: 065
     Dates: start: 20210412
  4. LEVOTHYROXINE SODIUM [Concomitant]
     Active Substance: LEVOTHYROXINE SODIUM
     Dosage: FROM MONDAY TO SATURDAY
     Dates: start: 20220305
  5. LEVOTHYROXINE SODIUM [Concomitant]
     Active Substance: LEVOTHYROXINE SODIUM
     Dosage: SUNDAY
  6. PANTOPRAZOLE [Concomitant]
     Active Substance: PANTOPRAZOLE
     Dosage: 1 TABLET/DAY, CYCLES OF 10 DAYS PER MONTH
  7. CALCIUM CARBONATE\CHOLECALCIFEROL [Concomitant]
     Active Substance: CALCIUM CARBONATE\CHOLECALCIFEROL
     Dates: start: 202109

REACTIONS (10)
  - Uveal melanoma [Recovering/Resolving]
  - Paraesthesia [Not Recovered/Not Resolved]
  - Myalgia [Not Recovered/Not Resolved]
  - Fatigue [Not Recovered/Not Resolved]
  - Choroid melanoma [Unknown]
  - General physical health deterioration [Unknown]
  - Drug intolerance [Unknown]
  - Headache [Not Recovered/Not Resolved]
  - Hypothyroidism [Unknown]
  - Headache [Unknown]

NARRATIVE: CASE EVENT DATE: 20200603
